FAERS Safety Report 16454875 (Version 1)
Quarter: 2019Q2

REPORT INFORMATION
  Report Type: Spontaneous
  Country: FR (occurrence: FR)
  Receive Date: 20190619
  Receipt Date: 20190619
  Transmission Date: 20190711
  Serious: Yes (Hospitalization, Other)
  Sender: FDA-Public Use
  Company Number: PHHY2019FR135694

PATIENT
  Age: 64 Year
  Sex: Male
  Weight: 81 kg

DRUGS (6)
  1. ACICLOVIR [Suspect]
     Active Substance: ACYCLOVIR
     Dosage: 15 MG/KG, Q8H (INCREASED THE ACICLOVIR TO 15 MG/KG/8 H (THAT IS 3X1.2 G DILUTED IN 250 ML OF SERUM )
     Route: 065
  2. METFORMIN [Concomitant]
     Active Substance: METFORMIN HYDROCHLORIDE
     Indication: TYPE 2 DIABETES MELLITUS
     Route: 065
  3. ACICLOVIR [Suspect]
     Active Substance: ACYCLOVIR
     Dosage: 3X1 GR ACICLOVIR DILUTED IN 300 ML OF SERUM SALINE (3.33 MG ACICLOVIR/ML
     Route: 065
  4. ACICLOVIR [Suspect]
     Active Substance: ACYCLOVIR
     Indication: VARICELLA ZOSTER VIRUS INFECTION
     Dosage: 500 MG, Q8H
     Route: 065
  5. ACICLOVIR [Suspect]
     Active Substance: ACYCLOVIR
     Dosage: 750 MG, Q8H
     Route: 065
  6. SALINE [Concomitant]
     Active Substance: SODIUM CHLORIDE
     Indication: PRODUCT USED FOR UNKNOWN INDICATION
     Dosage: 300 ML, UNK(ACICLOVIR  15 MG/KG/8 H (THAT IS 3*1.2 G DILUTED IN 250 ML OF SERUM SALINE (4.8 MG/ML O)
     Route: 065

REACTIONS (7)
  - Dizziness [Unknown]
  - Abdominal discomfort [Unknown]
  - Confusional state [Recovered/Resolved]
  - Acute kidney injury [Recovered/Resolved]
  - Aphasia [Recovered/Resolved]
  - Gait disturbance [Recovered/Resolved]
  - Speech disorder [Recovered/Resolved]

NARRATIVE: CASE EVENT DATE: 20180406
